FAERS Safety Report 10045497 (Version 1)
Quarter: 2014Q1

REPORT INFORMATION
  Report Type: Spontaneous
  Country: US (occurrence: US)
  Receive Date: 20140328
  Receipt Date: 20140328
  Transmission Date: 20141002
  Serious: Yes (Other)
  Sender: FDA-Public Use
  Company Number: US-ELI_LILLY_AND_COMPANY-US201403007907

PATIENT
  Age: 51 Year
  Sex: Male

DRUGS (2)
  1. INSULIN LISPRO [Suspect]
     Indication: TYPE 2 DIABETES MELLITUS
     Route: 065
  2. LANTUS [Concomitant]

REACTIONS (3)
  - Shock hypoglycaemic [Unknown]
  - Foot fracture [Unknown]
  - Accident at work [Unknown]
